FAERS Safety Report 14393741 (Version 2)
Quarter: 2018Q1

REPORT INFORMATION
  Report Type: Spontaneous
  Country: IN (occurrence: IN)
  Receive Date: 20180116
  Receipt Date: 20180116
  Transmission Date: 20180509
  Serious: Yes (Other)
  Sender: FDA-Public Use
  Company Number: IN-BAUSCH-BL-2018-000738

PATIENT
  Age: 49 Year
  Sex: Male

DRUGS (1)
  1. 8-MOP [Suspect]
     Active Substance: METHOXSALEN
     Indication: VITILIGO
     Dosage: 10-30 MG/DAY
     Route: 048

REACTIONS (2)
  - Retinal toxicity [Unknown]
  - Wrong technique in product usage process [Unknown]
